FAERS Safety Report 16845845 (Version 1)
Quarter: 2019Q3

REPORT INFORMATION
  Report Type: Spontaneous
  Country: US (occurrence: US)
  Receive Date: 20190924
  Receipt Date: 20190924
  Transmission Date: 20191005
  Serious: No
  Sender: FDA-Public Use
  Company Number: US-CATALYST PHARMACEUTICALS, INC-2019CAT00194

PATIENT
  Sex: Female

DRUGS (2)
  1. FIRDAPSE [Suspect]
     Active Substance: AMIFAMPRIDINE
     Dosage: 15 MG
  2. FIRDAPSE [Suspect]
     Active Substance: AMIFAMPRIDINE
     Indication: MYASTHENIC SYNDROME
     Dosage: 10 MG

REACTIONS (5)
  - Myasthenic syndrome [Recovering/Resolving]
  - Asthenia [Unknown]
  - Therapeutic product effect incomplete [Not Recovered/Not Resolved]
  - Performance status decreased [Unknown]
  - Therapeutic response shortened [Not Recovered/Not Resolved]
